FAERS Safety Report 7343636-0 (Version None)
Quarter: 2011Q1

REPORT INFORMATION
  Report Type: 
  Country: None (occurrence: None)
  Receive Date: 20110310
  Receipt Date: 20100819
  Transmission Date: 20110831
  Serious: No
  Sender: FDA-Public Use
  Company Number: A0876725A

PATIENT
  Age: 49 Year

DRUGS (1)
  1. NICORETTE [Suspect]
     Dates: start: 20100802, end: 20100807

REACTIONS (2)
  - HEADACHE [None]
  - DRUG ADMINISTRATION ERROR [None]
